FAERS Safety Report 8295043-4 (Version None)
Quarter: 2012Q2

REPORT INFORMATION
  Report Type: 
  Country: None (occurrence: None)
  Receive Date: 20120418
  Receipt Date: 20120409
  Transmission Date: 20120825
  Serious: Yes (Other)
  Sender: FDA-Public Use
  Company Number: US-BAYER-2012-034559

PATIENT
  Age: 37 Year

DRUGS (6)
  1. GABAPENTIN [Concomitant]
     Dosage: 300 MG, BID
  2. TRAMADOL [Concomitant]
     Dosage: 2 DF, BID
  3. INSULIN [Concomitant]
     Dosage: 25 IU, BID
  4. ALEVE (CAPLET) [Suspect]
     Indication: ANALGESIC THERAPY
     Route: 048
  5. NEURONTIN [Concomitant]
     Indication: NEUROPATHY PERIPHERAL
  6. HYDROCODONE [Concomitant]
     Dosage: AS NEEDED ONCE DAILY

REACTIONS (9)
  - ABDOMINAL DISCOMFORT [None]
  - FLATULENCE [None]
  - BALANCE DISORDER [None]
  - INTESTINAL DILATATION [None]
  - CONSTIPATION [None]
  - DISTURBANCE IN ATTENTION [None]
  - NO ADVERSE EVENT [None]
  - ASTHENIA [None]
  - ABDOMINAL DISTENSION [None]
